FAERS Safety Report 20171778 (Version 3)
Quarter: 2022Q3

REPORT INFORMATION
  Report Type: Spontaneous
  Country: IN (occurrence: IN)
  Receive Date: 20211210
  Receipt Date: 20220801
  Transmission Date: 20221027
  Serious: Yes (Death, Other)
  Sender: FDA-Public Use
  Company Number: IN-PFIZER INC-202101676952

PATIENT
  Age: 61 Year
  Sex: Female

DRUGS (6)
  1. PALBOCICLIB [Suspect]
     Active Substance: PALBOCICLIB
     Dosage: 125 MG, 1X/DAY (3 WEEKS ON + 1 WEK OFF)
     Route: 048
     Dates: start: 202109
  2. PALBOCICLIB [Suspect]
     Active Substance: PALBOCICLIB
     Dosage: 125 MG
     Route: 048
     Dates: start: 20210925, end: 20220305
  3. LETROZOLE [Concomitant]
     Active Substance: LETROZOLE
     Dosage: 2.5 MG, 1X/DAY
     Route: 048
     Dates: start: 202109
  4. ZOLEDRONIC ACID [Concomitant]
     Active Substance: ZOLEDRONIC ACID
     Dosage: Q4WEEKLY
     Dates: start: 202109
  5. MUCAINE [ALUMINIUM HYDROXIDE GEL;MAGNESIUM HYDROXIDE;OXETACAINE] [Concomitant]
     Dosage: 2 UNK
  6. ULTRACET [Concomitant]
     Active Substance: ACETAMINOPHEN\TRAMADOL HYDROCHLORIDE
     Indication: Pain
     Dosage: UNK
     Route: 048

REACTIONS (4)
  - Death [Fatal]
  - Pleural effusion [Unknown]
  - Respiratory disorder [Unknown]
  - Dyspnoea [Unknown]
